FAERS Safety Report 7130726-0 (Version None)
Quarter: 2010Q4

REPORT INFORMATION
  Report Type: 
  Country: None (occurrence: None)
  Receive Date: 20101201
  Receipt Date: 20101119
  Transmission Date: 20110411
  Serious: Yes (Other)
  Sender: FDA-Public Use
  Company Number: US-ROCHE-722607

PATIENT
  Sex: Male

DRUGS (6)
  1. ACCUTANE [Suspect]
     Indication: ACNE
     Route: 065
     Dates: start: 19870101
  2. ACCUTANE [Suspect]
     Route: 065
     Dates: start: 19880101
  3. ACCUTANE [Suspect]
     Route: 065
     Dates: start: 20020819, end: 20030101
  4. HYTONE [Concomitant]
     Dates: start: 20020819
  5. CETAPHIL [Concomitant]
     Dates: start: 20020819
  6. LOCOID [Concomitant]
     Dates: start: 20020819

REACTIONS (17)
  - ALOPECIA [None]
  - ANAL FISSURE [None]
  - ANAL PRURITUS [None]
  - ARTHRALGIA [None]
  - CHRONIC FATIGUE SYNDROME [None]
  - CROHN'S DISEASE [None]
  - DEPRESSION [None]
  - DIVERTICULUM [None]
  - DRY EYE [None]
  - GASTROINTESTINAL INJURY [None]
  - HAEMORRHOIDS [None]
  - INFLAMMATORY BOWEL DISEASE [None]
  - INTESTINAL HAEMORRHAGE [None]
  - PRURITUS [None]
  - SOMNOLENCE [None]
  - TENDONITIS [None]
  - XEROSIS [None]
